FAERS Safety Report 19123138 (Version 1)
Quarter: 2021Q2

REPORT INFORMATION
  Report Type: Spontaneous
  Country: CN (occurrence: CN)
  Receive Date: 20210412
  Receipt Date: 20210412
  Transmission Date: 20210717
  Serious: Yes (Other)
  Sender: FDA-Public Use
  Company Number: CN-BAYER-2021-119758

PATIENT
  Age: 65 Year
  Sex: Female
  Weight: 62 kg

DRUGS (2)
  1. SODIUM CHLORIDE. [Concomitant]
     Active Substance: SODIUM CHLORIDE
     Indication: VEHICLE SOLUTION USE
     Dosage: 30 ML, ONCE
     Route: 042
     Dates: start: 20210331, end: 20210331
  2. IOPROMIDE. [Suspect]
     Active Substance: IOPROMIDE
     Indication: ANGIOGRAM CEREBRAL
     Dosage: 93 ML 4.5ML/S, ONCE
     Route: 042
     Dates: start: 20210331, end: 20210331

REACTIONS (6)
  - Dizziness [Recovered/Resolved]
  - Eyelid rash [Recovered/Resolved]
  - Vomiting [Recovered/Resolved]
  - Conjunctival hyperaemia [Recovered/Resolved]
  - Nausea [Recovered/Resolved]
  - Eyelid oedema [Recovered/Resolved]

NARRATIVE: CASE EVENT DATE: 20210331
